FAERS Safety Report 5042080-9 (Version None)
Quarter: 2006Q2

REPORT INFORMATION
  Report Type: 
  Country: None (occurrence: None)
  Receive Date: 20060630
  Receipt Date: 20060627
  Transmission Date: 20061013
  Serious: Yes (Hospitalization)
  Sender: FDA-Public Use
  Company Number: CTP20060018

PATIENT
  Age: 28 Year
  Sex: Male

DRUGS (1)
  1. CITALOPRAM [Suspect]
     Dosage: 20 MG QAM PO
     Route: 048

REACTIONS (4)
  - DIARRHOEA [None]
  - DIPLOPIA [None]
  - FEAR [None]
  - MEMORY IMPAIRMENT [None]
